FAERS Safety Report 10737008 (Version 2)
Quarter: 2015Q3

REPORT INFORMATION
  Report Type: Spontaneous
  Country: IT (occurrence: IT)
  Receive Date: 20150126
  Receipt Date: 20150825
  Transmission Date: 20151125
  Serious: Yes (Hospitalization)
  Sender: FDA-Public Use
  Company Number: IT-TEVA-536053ISR

PATIENT
  Age: 64 Year
  Sex: Female

DRUGS (1)
  1. OXALIPLATINO TEVA - TEVA ITALIA S.R.L. [Suspect]
     Active Substance: OXALIPLATIN
     Indication: ADENOCARCINOMA OF COLON
     Dosage: 115 MG TOTAL
     Route: 042
     Dates: start: 20150114, end: 20150114

REACTIONS (2)
  - Dyspnoea [Recovered/Resolved]
  - Rhinorrhoea [Recovered/Resolved]

NARRATIVE: CASE EVENT DATE: 20150114
